FAERS Safety Report 24760902 (Version 1)
Quarter: 2024Q4

REPORT INFORMATION
  Report Type: Report from Study
  Country: IT (occurrence: IT)
  Receive Date: 20241220
  Receipt Date: 20241220
  Transmission Date: 20250115
  Serious: Yes (Hospitalization)
  Sender: PAREXEL
  Company Number: IT-ZAMBON-202403460COR

PATIENT

DRUGS (2)
  1. FOSFOMYCIN TROMETHAMINE [Suspect]
     Active Substance: FOSFOMYCIN TROMETHAMINE
     Indication: Product used for unknown indication
     Dosage: UNK
     Route: 065
     Dates: start: 20241207
  2. IBUPROFEN ARGININE [Suspect]
     Active Substance: IBUPROFEN ARGININE
     Indication: Product used for unknown indication
     Dosage: UNK
     Route: 065
     Dates: start: 20241207

REACTIONS (3)
  - Face oedema [Recovering/Resolving]
  - Anaphylactic reaction [Recovering/Resolving]
  - Urticaria [Recovering/Resolving]

NARRATIVE: CASE EVENT DATE: 20241207
